FAERS Safety Report 19968947 (Version 1)
Quarter: 2021Q4

REPORT INFORMATION
  Report Type: Report from Study
  Country: CA (occurrence: CA)
  Receive Date: 20211019
  Receipt Date: 20211019
  Transmission Date: 20220303
  Serious: Yes (Hospitalization)
  Sender: FDA-Public Use
  Company Number: 2021A774081

PATIENT
  Age: 69 Year
  Sex: Male

DRUGS (18)
  1. ROSUVASTATIN CALCIUM [Suspect]
     Active Substance: ROSUVASTATIN CALCIUM
     Dosage: 10.0 MILLIGRAM 2 EVERY 1 DAYS
     Route: 048
  2. THEOPHYLLINE ANHYDROUS [Suspect]
     Active Substance: THEOPHYLLINE ANHYDROUS
     Dosage: 600.0 MILLIGRAM 1 EVERY 1 DAYS
     Route: 065
  3. ADVAIR HFA [Suspect]
     Active Substance: FLUTICASONE PROPIONATE\SALMETEROL XINAFOATE
     Route: 065
  4. ASPIRIN [Suspect]
     Active Substance: ASPIRIN
     Dosage: 50.0 MILLIGRAM 2 EVERY 1 DAYS
     Route: 065
  5. ATIVAN [Suspect]
     Active Substance: LORAZEPAM
     Route: 065
  6. BUPROPION HYDROCHLORIDE [Suspect]
     Active Substance: BUPROPION HYDROCHLORIDE
     Route: 065
  7. CITALOPRAM [Suspect]
     Active Substance: CITALOPRAM HYDROBROMIDE
     Dosage: 40.0 MILLIGRAM 2 EVERY 1 DAYS
     Route: 065
  8. COMBIVENT [Suspect]
     Active Substance: ALBUTEROL SULFATE\IPRATROPIUM BROMIDE
     Route: 065
  9. FORMOTEROL FUMARATE\MOMETASONE FUROATE [Suspect]
     Active Substance: FORMOTEROL FUMARATE\MOMETASONE FUROATE
     Dosage: 1.0 DOSAGE 2 EVERY 1 DAYS
     Route: 065
  10. GLYCOPYRROLATE [Suspect]
     Active Substance: GLYCOPYRROLATE
     Dosage: 50.0 MICROGRAM 2 EVERY 1 DAYS
     Route: 065
  11. MONTELUKAST SODIUM [Suspect]
     Active Substance: MONTELUKAST SODIUM
     Dosage: 10.0 MILLIGRAM 2 EVERY 1 DAYS
     Route: 065
  12. NASONEX [Suspect]
     Active Substance: MOMETASONE FUROATE
     Dosage: 50.0 MILLIGRAM 2 EVERY 1 DAYS
     Route: 065
  13. PANTOPRAZOLE SODIUM [Suspect]
     Active Substance: PANTOPRAZOLE SODIUM
     Dosage: 40.0 MILLIGRAM 2 EVERY 1 DAYS
     Route: 065
  14. ALBUTEROL [Suspect]
     Active Substance: ALBUTEROL
     Route: 065
  15. ALBUTEROL SULFATE [Suspect]
     Active Substance: ALBUTEROL SULFATE
     Dosage: 100.0 MILLIGRAM 4 EVERY 1 DAYS
     Route: 065
  16. SODIUM BICARBONATE\SODIUM CHLORIDE [Suspect]
     Active Substance: SODIUM BICARBONATE\SODIUM CHLORIDE
     Dosage: 1.0 DOSAGE 2 EVERY 1 DAY
     Route: 065
  17. TIOTROPIUM [Suspect]
     Active Substance: TIOTROPIUM
     Route: 065
  18. ALBUTEROL SULFATE [Suspect]
     Active Substance: ALBUTEROL SULFATE
     Dosage: 6.0 MILLIGRAM 2 EVERY 1 DAYS
     Route: 065

REACTIONS (20)
  - Adjustment disorder [Recovered/Resolved]
  - Anxiety [Recovered/Resolved]
  - Asthma [Recovered/Resolved]
  - Full blood count abnormal [Recovered/Resolved]
  - Chest discomfort [Recovered/Resolved]
  - Chronic obstructive pulmonary disease [Recovered/Resolved]
  - Cough [Recovered/Resolved]
  - Depressed mood [Recovered/Resolved]
  - Discomfort [Recovered/Resolved]
  - Dyspnoea [Recovered/Resolved]
  - Gastrooesophageal reflux disease [Recovered/Resolved]
  - Hypercholesterolaemia [Recovered/Resolved]
  - Loss of personal independence in daily activities [Recovered/Resolved]
  - Obesity [Recovered/Resolved]
  - Productive cough [Recovered/Resolved]
  - Rhinitis perennial [Recovered/Resolved]
  - Sleep disorder due to a general medical condition [Recovered/Resolved]
  - Wheezing [Recovered/Resolved]
  - Drug intolerance [Recovered/Resolved]
  - Therapeutic product effect incomplete [Recovered/Resolved]
